FAERS Safety Report 9882498 (Version 1)
Quarter: 2014Q1

REPORT INFORMATION
  Report Type: Spontaneous
  Country: US (occurrence: US)
  Receive Date: 20140207
  Receipt Date: 20140207
  Transmission Date: 20141002
  Serious: Yes (Other)
  Sender: FDA-Public Use
  Company Number: US-BAYER-2014-016395

PATIENT
  Sex: Male

DRUGS (1)
  1. CIPRO [Suspect]

REACTIONS (36)
  - Tendon disorder [None]
  - Neuropathy peripheral [None]
  - Myalgia [None]
  - Muscle spasms [None]
  - Muscular weakness [None]
  - Muscle atrophy [None]
  - Muscle tightness [None]
  - Metatarsalgia [None]
  - Rash [None]
  - Vasodilatation [None]
  - Alopecia [None]
  - Onychoclasis [None]
  - Photosensitivity reaction [None]
  - Vision blurred [None]
  - Photophobia [None]
  - Vitreous floaters [None]
  - Dysgeusia [None]
  - Panic attack [None]
  - Dissociation [None]
  - Insomnia [None]
  - Hypersomnia [None]
  - Sleep disorder [None]
  - Fatigue [None]
  - Amnesia [None]
  - Aphasia [None]
  - Hypersensitivity [None]
  - Paradoxical drug reaction [None]
  - Pain [None]
  - Insomnia [None]
  - Dysstasia [None]
  - Asthenia [None]
  - Musculoskeletal pain [None]
  - Arthralgia [None]
  - Toxicity to various agents [None]
  - Activities of daily living impaired [None]
  - Bedridden [None]
